FAERS Safety Report 6275532-4 (Version None)
Quarter: 2009Q3

REPORT INFORMATION
  Report Type: 
  Country: None (occurrence: None)
  Receive Date: 20090721
  Receipt Date: 20090709
  Transmission Date: 20100115
  Serious: Yes (Hospitalization)
  Sender: FDA-Public Use
  Company Number: US-PFIZER INC-2009224921

PATIENT
  Age: 56 Year
  Sex: Male
  Weight: 84.5 kg

DRUGS (2)
  1. BLINDED *PLACEBO [Suspect]
     Indication: NON-SMALL CELL LUNG CANCER
     Dosage: 37.5 MG, 1X/DAY
     Route: 048
     Dates: start: 20090420, end: 20090511
  2. BLINDED SUNITINIB MALATE [Suspect]
     Indication: NON-SMALL CELL LUNG CANCER
     Dosage: 37.5 MG, 1X/DAY
     Route: 048
     Dates: start: 20090420, end: 20090511

REACTIONS (2)
  - LEFT VENTRICULAR DYSFUNCTION [None]
  - MYOCARDIAL INFARCTION [None]
